FAERS Safety Report 8453028-9 (Version None)
Quarter: 2012Q2

REPORT INFORMATION
  Report Type: 
  Country: None (occurrence: None)
  Receive Date: 20120620
  Receipt Date: 20120521
  Transmission Date: 20120825
  Serious: No
  Sender: FDA-Public Use
  Company Number: US-VERTEX PHARMACEUTICALS INC.-AE-2012-006498

PATIENT
  Sex: Female
  Weight: 73.548 kg

DRUGS (3)
  1. PEGASYS [Concomitant]
     Indication: HEPATITIS C
     Route: 058
     Dates: start: 20120424
  2. INCIVEK [Suspect]
     Indication: HEPATITIS C
     Route: 048
     Dates: start: 20120424
  3. RIBAVIRIN [Concomitant]
     Indication: HEPATITIS C
     Route: 048
     Dates: start: 20120424

REACTIONS (7)
  - PANIC ATTACK [None]
  - FEELING OF BODY TEMPERATURE CHANGE [None]
  - RASH [None]
  - EPISTAXIS [None]
  - ORAL CANDIDIASIS [None]
  - ANAL PRURITUS [None]
  - CHILLS [None]
